FAERS Safety Report 5346806-6 (Version None)
Quarter: 2007Q2

REPORT INFORMATION
  Report Type: 
  Country: None (occurrence: None)
  Receive Date: 20070501
  Receipt Date: 20070323
  Transmission Date: 20071010
  Serious: No
  Sender: FDA-Public Use
  Company Number: VNL_0142_2006

PATIENT
  Age: 72 Year
  Sex: Male

DRUGS (1)
  1. APOKYN [Suspect]
     Dosage: DF SC
     Route: 058
     Dates: start: 20060401, end: 20060401

REACTIONS (1)
  - ADVERSE DRUG REACTION [None]
